FAERS Safety Report 18452334 (Version 2)
Quarter: 2020Q4

REPORT INFORMATION
  Report Type: Spontaneous
  Country: US (occurrence: US)
  Receive Date: 20201102
  Receipt Date: 20201105
  Transmission Date: 20210114
  Serious: No
  Sender: FDA-Public Use
  Company Number: US-TEVA-2020-US-1843246

PATIENT
  Sex: Male

DRUGS (1)
  1. METHYLPHENIDATE HYDROCHLORIDE. [Suspect]
     Active Substance: METHYLPHENIDATE HYDROCHLORIDE
     Indication: ATTENTION DEFICIT HYPERACTIVITY DISORDER
     Route: 065
     Dates: start: 20201025

REACTIONS (11)
  - Feeling abnormal [Unknown]
  - Emotional disorder [Unknown]
  - Anger [Unknown]
  - Drug ineffective [Unknown]
  - Product substitution issue [Unknown]
  - Crying [Unknown]
  - Screaming [Unknown]
  - Product quality issue [Unknown]
  - Psychomotor hyperactivity [Unknown]
  - Paranoia [Unknown]
  - Mental disorder [Unknown]

NARRATIVE: CASE EVENT DATE: 202010
